FAERS Safety Report 23837705 (Version 6)
Quarter: 2025Q4

REPORT INFORMATION
  Report Type: Spontaneous
  Country: US (occurrence: US)
  Receive Date: 20240509
  Receipt Date: 20251111
  Transmission Date: 20260118
  Serious: No
  Sender: SANOFI AVENTIS
  Company Number: US-SA-SAC20240430001547

PATIENT
  Age: 86 Year
  Sex: Female
  Weight: 64.399 kg

DRUGS (17)
  1. DUPIXENT [Suspect]
     Active Substance: DUPILUMAB
     Indication: Dermatitis atopic
     Dosage: 300 MG, QOW
     Route: 058
     Dates: start: 202401
  2. TRAZODONE HCL [Concomitant]
     Active Substance: TRAZODONE HYDROCHLORIDE
  3. SIMVASTATIN [Concomitant]
     Active Substance: SIMVASTATIN
  4. OMEPRAZOLE [Concomitant]
     Active Substance: OMEPRAZOLE
     Dosage: UNK
  5. SYNTHROID [Concomitant]
     Active Substance: LEVOTHYROXINE SODIUM
  6. NIFEDIPINE [Concomitant]
     Active Substance: NIFEDIPINE
  7. CITRACAL + D3 [Concomitant]
  8. NITROFURANTOIN [Concomitant]
     Active Substance: NITROFURANTOIN
  9. VITAMINS [Concomitant]
     Active Substance: VITAMINS
  10. TRETINOIN [Concomitant]
     Active Substance: TRETINOIN
  11. ZOCOR [Concomitant]
     Active Substance: SIMVASTATIN
  12. CHLORHEXIDINE [Concomitant]
     Active Substance: CHLORHEXIDINE
  13. CALCIUM [Concomitant]
     Active Substance: CALCIUM
  14. MINERALS\VITAMINS [Concomitant]
     Active Substance: MINERALS\VITAMINS
  15. TYLENOL [Concomitant]
     Active Substance: ACETAMINOPHEN
  16. NIFEDIPINE [Concomitant]
     Active Substance: NIFEDIPINE
     Dosage: UNK
  17. MINERALS\VITAMINS [Concomitant]
     Active Substance: MINERALS\VITAMINS
     Dosage: UNK

REACTIONS (6)
  - Staphylococcal skin infection [Unknown]
  - Dry skin [Unknown]
  - Contusion [Unknown]
  - Urinary tract infection [Unknown]
  - Pruritus [Unknown]
  - Skin exfoliation [Unknown]

NARRATIVE: CASE EVENT DATE: 20240101
